FAERS Safety Report 11898295 (Version 1)
Quarter: 2016Q1

REPORT INFORMATION
  Report Type: Spontaneous
  Country: US (occurrence: US)
  Receive Date: 20160108
  Receipt Date: 20160108
  Transmission Date: 20160526
  Serious: No
  Sender: FDA-Public Use
  Company Number: US-ASTRAZENECA-2016SE00148

PATIENT
  Sex: Female

DRUGS (1)
  1. BYDUREON [Suspect]
     Active Substance: EXENATIDE
     Indication: DIABETES MELLITUS
     Dosage: 2 MG 4 COUNT, UNKNOWN
     Route: 065

REACTIONS (4)
  - Injection site pruritus [Unknown]
  - Rash [Unknown]
  - Intentional product misuse [Unknown]
  - Injection site bruising [Recovered/Resolved]
